FAERS Safety Report 13563347 (Version 6)
Quarter: 2018Q2

REPORT INFORMATION
  Report Type: Report from Study
  Country: JP (occurrence: JP)
  Receive Date: 20170519
  Receipt Date: 20180615
  Transmission Date: 20180711
  Serious: Yes (Death, Hospitalization)
  Sender: FDA-Public Use
  Company Number: JP-ROCHE-1871078

PATIENT
  Age: 37 Year
  Sex: Male
  Weight: 70.1 kg

DRUGS (19)
  1. PALONOSETRON HYDROCHLORIDE. [Concomitant]
     Active Substance: PALONOSETRON HYDROCHLORIDE
     Indication: NAUSEA
     Route: 065
     Dates: start: 20161130, end: 20161130
  2. HYDROXOCOBALAMIN ACETATE. [Concomitant]
     Active Substance: HYDROXOCOBALAMIN ACETATE
     Indication: VITAMIN B12 DEFICIENCY
     Route: 065
     Dates: start: 20161102
  3. HYDROPHILIC OINTMENT [Concomitant]
     Active Substance: HYDROPHILIC OINTMENT
     Indication: RASH PRURITIC
     Route: 065
     Dates: start: 20161208, end: 20161221
  4. FAMOTIDINE. [Concomitant]
     Active Substance: FAMOTIDINE
     Route: 065
     Dates: start: 20161130, end: 20161130
  5. PROCHLORPERAZINE MALEATE. [Concomitant]
     Active Substance: PROCHLORPERAZINE MALEATE
     Indication: NON-SMALL CELL LUNG CANCER STAGE IV
     Route: 065
     Dates: start: 20161121, end: 20161204
  6. BEPOTASTINE BESILATE [Concomitant]
     Active Substance: BEPOTASTINE BESILATE
     Indication: RASH PRURITIC
     Route: 065
     Dates: start: 20161208, end: 20161215
  7. CISPLATIN. [Suspect]
     Active Substance: CISPLATIN
     Indication: NON-SMALL CELL LUNG CANCER STAGE IV
     Dosage: MOST RECENT DOSE PRIOR TO EVENT ONSET: 30/NOV/2016
     Route: 042
     Dates: start: 20161130
  8. MANNITOL. [Concomitant]
     Active Substance: MANNITOL
     Indication: NEPHROPATHY
     Dosage: REPORTED AS: MANNITOL S
     Route: 065
     Dates: start: 20161130, end: 20161130
  9. PEMETREXED. [Suspect]
     Active Substance: PEMETREXED
     Indication: NON-SMALL CELL LUNG CANCER STAGE IV
     Dosage: MOST RECENT DOSE PRIOR TO EVENT ONSET: 30/NOV/2016
     Route: 042
     Dates: start: 20161130
  10. APREPITANT. [Concomitant]
     Active Substance: APREPITANT
     Indication: NAUSEA
     Route: 065
     Dates: start: 20161130, end: 20161202
  11. ACETAMINOPHEN. [Concomitant]
     Active Substance: ACETAMINOPHEN
     Indication: NON-SMALL CELL LUNG CANCER STAGE IV
     Route: 065
     Dates: end: 20161121
  12. CHLORPROMAZINE HYDROCHLORIDE. [Concomitant]
     Active Substance: CHLORPROMAZINE HYDROCHLORIDE
     Indication: HICCUPS
     Route: 065
     Dates: start: 20161201, end: 20161202
  13. SENNOSIDE A+B [Concomitant]
     Active Substance: SENNOSIDES A AND B
     Indication: CONSTIPATION
     Route: 065
     Dates: start: 20161202
  14. ATEZOLIZUMAB. [Suspect]
     Active Substance: ATEZOLIZUMAB
     Indication: NON-SMALL CELL LUNG CANCER STAGE IV
     Dosage: MOST RECENT DOSE PRIOR TO EVENT ONSET: 30/NOV/2016
     Route: 042
     Dates: start: 20161130
  15. FUROSEMIDE. [Concomitant]
     Active Substance: FUROSEMIDE
     Indication: POLYURIA
     Route: 065
     Dates: start: 20161202, end: 20161202
  16. METOCLOPRAMIDE. [Concomitant]
     Active Substance: METOCLOPRAMIDE
     Indication: NAUSEA
     Route: 065
     Dates: start: 20161201
  17. NAPROXEN. [Concomitant]
     Active Substance: NAPROXEN
     Indication: NON-SMALL CELL LUNG CANCER STAGE IV
     Route: 065
     Dates: start: 20161121, end: 20161220
  18. REBAMIPIDE [Concomitant]
     Active Substance: REBAMIPIDE
     Indication: ABDOMINAL PAIN UPPER
     Route: 065
     Dates: start: 20161205, end: 20161205
  19. MAGNESIUM OXIDE. [Concomitant]
     Active Substance: MAGNESIUM OXIDE
     Indication: CONSTIPATION
     Route: 065
     Dates: start: 20161221

REACTIONS (1)
  - Drug-induced liver injury [Not Recovered/Not Resolved]

NARRATIVE: CASE EVENT DATE: 20161221
